FAERS Safety Report 22714269 (Version 5)
Quarter: 2025Q3

REPORT INFORMATION
  Report Type: Report from Study
  Country: CA (occurrence: CA)
  Receive Date: 20230718
  Receipt Date: 20250930
  Transmission Date: 20251020
  Serious: Yes (Other)
  Sender: AUROBINDO
  Company Number: CA-MLMSERVICE-20230629-4374778-1

PATIENT
  Age: 68 Year
  Sex: Male

DRUGS (20)
  1. FAMOTIDINE [Suspect]
     Active Substance: FAMOTIDINE
     Indication: Premedication
     Route: 042
  2. ONDANSETRON [Suspect]
     Active Substance: ONDANSETRON
     Indication: Premedication
     Route: 065
  3. ONDANSETRON [Suspect]
     Active Substance: ONDANSETRON
     Indication: Prophylaxis of nausea and vomiting
  4. OXALIPLATIN [Suspect]
     Active Substance: OXALIPLATIN
     Indication: Colorectal cancer stage IV
     Route: 065
  5. IRINOTECAN HYDROCHLORIDE [Suspect]
     Active Substance: IRINOTECAN HYDROCHLORIDE
     Indication: Colorectal cancer stage IV
     Route: 042
  6. ACETAMINOPHEN [Suspect]
     Active Substance: ACETAMINOPHEN
     Indication: Premedication
     Route: 048
  7. CETIRIZINE HYDROCHLORIDE [Suspect]
     Active Substance: CETIRIZINE HYDROCHLORIDE
     Indication: Premedication
     Route: 048
  8. CETIRIZINE HYDROCHLORIDE [Suspect]
     Active Substance: CETIRIZINE HYDROCHLORIDE
     Indication: Off label use
  9. LEUCOVORIN [Suspect]
     Active Substance: LEUCOVORIN\LEUCOVORIN CALCIUM
     Indication: Colorectal cancer stage IV
     Route: 065
  10. FLUOROURACIL [Suspect]
     Active Substance: FLUOROURACIL
     Indication: Colorectal cancer stage IV
     Route: 065
  11. DEXAMETHASONE [Suspect]
     Active Substance: DEXAMETHASONE
     Indication: Premedication
     Route: 065
  12. DEXAMETHASONE [Suspect]
     Active Substance: DEXAMETHASONE
     Indication: Prophylaxis of nausea and vomiting
  13. IBUPROFEN [Suspect]
     Active Substance: IBUPROFEN
     Indication: Premedication
     Route: 048
  14. ACETAMINOPHEN [Concomitant]
     Active Substance: ACETAMINOPHEN
     Indication: Premedication
     Route: 048
  15. ACETAMINOPHEN [Concomitant]
     Active Substance: ACETAMINOPHEN
     Indication: Cytokine release syndrome
  16. ANAKINRA [Concomitant]
     Active Substance: ANAKINRA
     Indication: Premedication
     Route: 058
  17. ANAKINRA [Concomitant]
     Active Substance: ANAKINRA
     Indication: Cytokine release syndrome
  18. IBUPROFEN [Concomitant]
     Active Substance: IBUPROFEN
     Indication: Premedication
     Route: 048
  19. IBUPROFEN [Concomitant]
     Active Substance: IBUPROFEN
     Indication: Cytokine release syndrome
  20. SALINE [Concomitant]
     Active Substance: SODIUM CHLORIDE
     Indication: Premedication
     Route: 042

REACTIONS (7)
  - Cytokine release syndrome [Recovered/Resolved]
  - Type I hypersensitivity [Recovered/Resolved]
  - Off label use [Unknown]
  - Prescribed overdose [Unknown]
  - Drug hypersensitivity [Recovered/Resolved]
  - Drug ineffective [Recovered/Resolved]
  - Pyrexia [Recovered/Resolved]
